FAERS Safety Report 13194686 (Version 1)
Quarter: 2017Q1

REPORT INFORMATION
  Report Type: Spontaneous
  Country: FR (occurrence: FR)
  Receive Date: 20170207
  Receipt Date: 20170207
  Transmission Date: 20170428
  Serious: Yes (Hospitalization)
  Sender: FDA-Public Use
  Company Number: FR-009507513-1702FRA000962

PATIENT
  Age: 77 Year
  Sex: Female

DRUGS (16)
  1. KARDEGIC [Suspect]
     Active Substance: ASPIRIN LYSINE
     Indication: ATRIAL FIBRILLATION
     Dosage: 1 SACHET, PER DAY
     Route: 048
     Dates: start: 20160928, end: 20161003
  2. LANTUS [Concomitant]
     Active Substance: INSULIN GLARGINE
     Dosage: 36 IU, PER DAY
     Route: 058
     Dates: start: 20160928, end: 20161003
  3. TARDYFERON [Concomitant]
     Active Substance: FERROUS SULFATE
     Dosage: 2 COATED TABLET (1 DF, 2 PER DAY)
     Route: 048
     Dates: start: 20160928, end: 20161003
  4. NOVORAPID [Concomitant]
     Active Substance: INSULIN ASPART
     Dosage: 7 MICROGRAM PER SQ METER, TID
     Route: 058
     Dates: start: 20160928, end: 20161003
  5. GENTAMICINE [Concomitant]
     Active Substance: GENTAMICIN
     Indication: INFECTION
     Dosage: UNK
     Route: 042
     Dates: start: 20160929, end: 20161003
  6. SPECIAFOLDINE [Concomitant]
     Active Substance: FOLIC ACID
     Dosage: 1 TABLET, PER DAY
     Route: 048
     Dates: start: 20160928, end: 20161003
  7. RAMIPRIL. [Concomitant]
     Active Substance: RAMIPRIL
     Dosage: UNK; START DATE REPORTED AS ^LONG TERM^
     Route: 048
  8. CUBICIN [Suspect]
     Active Substance: DAPTOMYCIN
     Indication: INFECTION
     Dosage: 700 MG, PER DAY
     Route: 042
     Dates: start: 20160930, end: 20161014
  9. HEMIGOXINE NATIVELLE [Concomitant]
     Active Substance: DIGOXIN
     Dosage: 1 TABLET, PER DAY; START DATE REPORTED AS ^LONG TERM^
     Route: 048
  10. LANZOPRAZOL [Concomitant]
     Active Substance: LANSOPRAZOLE
     Dosage: 15 MG, PER DAY
     Route: 048
     Dates: start: 20160928, end: 20161003
  11. PREVISCAN [Suspect]
     Active Substance: FLUINDIONE
     Indication: ATRIAL FIBRILLATION
     Dosage: 0.25 TABLET, PER DAY; START DATE REPORTED AS ^LONG TERM^
     Route: 048
  12. CALCIPARINE [Suspect]
     Active Substance: HEPARIN CALCIUM
     Indication: PROPHYLAXIS
     Dosage: UNK
     Route: 058
     Dates: start: 20160928, end: 20161003
  13. VENLAFAXINE HYDROCHLORIDE. [Suspect]
     Active Substance: VENLAFAXINE HYDROCHLORIDE
     Indication: DEPRESSION
     Dosage: 1 DF, PER DAY
     Route: 048
  14. HUMALOG [Concomitant]
     Active Substance: INSULIN LISPRO
     Dosage: UNK
     Route: 058
     Dates: start: 20160928, end: 20161003
  15. BISOPROLOL FUMARATE. [Concomitant]
     Active Substance: BISOPROLOL FUMARATE
     Dosage: 2.5 MG, 1 PER DAY; START DATE REPORTED AS ^LONG TERM^, DURATION OF TREATMENT 6 DAYS
     Route: 048
     Dates: start: 20161003
  16. LASILIX [Concomitant]
     Active Substance: FUROSEMIDE
     Dosage: 0.25 TABLET, 1 PER DAY; START DATE REPORTED AS ^LONG TERM^
     Route: 048

REACTIONS (1)
  - Extradural haematoma [Recovered/Resolved]

NARRATIVE: CASE EVENT DATE: 20161005
